FAERS Safety Report 10877227 (Version 3)
Quarter: 2015Q3

REPORT INFORMATION
  Report Type: Spontaneous
  Country: US (occurrence: US)
  Receive Date: 20150302
  Receipt Date: 20150731
  Transmission Date: 20151125
  Serious: Yes (Other)
  Sender: FDA-Public Use
  Company Number: US-BANPHARM-20153471

PATIENT
  Age: 61 Year
  Sex: Female
  Weight: 76.66 kg

DRUGS (6)
  1. PSYLLIUM [Concomitant]
     Active Substance: PLANTAGO SEED
  2. ALEVE [Suspect]
     Active Substance: NAPROXEN SODIUM
     Indication: HEADACHE
     Dosage: 2 DF, ONCE
     Route: 048
     Dates: start: 20150125, end: 20150125
  3. CHOLESTEROL PILLS [Concomitant]
  4. VITAMINS [Concomitant]
     Active Substance: VITAMINS
  5. BLOOD PRESSURE PILLS [Concomitant]
     Active Substance: UNSPECIFIED INGREDIENT
  6. SPURLINA [Concomitant]

REACTIONS (21)
  - Dyspnoea [Recovered/Resolved]
  - Oropharyngeal pain [Recovered/Resolved]
  - Throat irritation [Recovered/Resolved]
  - Salivary hypersecretion [Recovered/Resolved]
  - Speech disorder [Recovered/Resolved]
  - Sensation of foreign body [Recovered/Resolved]
  - Sputum purulent [Recovered/Resolved]
  - Oesophageal irritation [Recovered/Resolved]
  - Throat irritation [Recovered/Resolved]
  - Sensation of foreign body [Recovered/Resolved]
  - Pharyngeal inflammation [Recovered/Resolved]
  - Regurgitation [Recovered/Resolved]
  - Foreign body [Recovered/Resolved]
  - Panic reaction [Recovered/Resolved]
  - Vomiting [Recovered/Resolved]
  - Oropharyngeal discomfort [Recovered/Resolved]
  - Pharyngeal oedema [Recovered/Resolved]
  - Dysphagia [Recovered/Resolved]
  - Choking [Recovered/Resolved]
  - Nausea [Recovered/Resolved]
  - Wrong technique in product usage process [Unknown]

NARRATIVE: CASE EVENT DATE: 20150125
